FAERS Safety Report 5027055-8 (Version None)
Quarter: 2006Q2

REPORT INFORMATION
  Report Type: 
  Country: None (occurrence: None)
  Receive Date: 20060609
  Receipt Date: 20060530
  Transmission Date: 20061013
  Serious: Yes (Death, Hospitalization)
  Sender: FDA-Public Use
  Company Number: 2006BI006817

PATIENT
  Sex: Female
  Weight: 143.7903 kg

DRUGS (1)
  1. AVONEX [Suspect]
     Indication: MULTIPLE SCLEROSIS
     Dosage: IM
     Route: 030
     Dates: start: 20030101, end: 20040101

REACTIONS (3)
  - DISEASE PROGRESSION [None]
  - LUNG DISORDER [None]
  - MULTIPLE SCLEROSIS [None]
